FAERS Safety Report 9813032 (Version 1)
Quarter: 2014Q1

REPORT INFORMATION
  Report Type: Not Available
  Country: FR (occurrence: FR)
  Receive Date: 20140113
  Receipt Date: 20140113
  Transmission Date: 20141002
  Serious: Yes (Hospitalization, Other)
  Sender: FDA-Public Use
  Company Number: FR-ASTELLAS-2014US000225

PATIENT
  Age: 75 Year
  Sex: Male

DRUGS (2)
  1. TARCEVA [Suspect]
     Indication: PRODUCT USED FOR UNKNOWN INDICATION
     Dosage: 1 DF, UID/QD
     Route: 048
     Dates: start: 201203, end: 20131104
  2. CISPLATINE [Concomitant]
     Indication: PRODUCT USED FOR UNKNOWN INDICATION
     Dosage: UNK
     Route: 065

REACTIONS (6)
  - Pneumatosis [Unknown]
  - Dysphagia [Unknown]
  - Oesophagitis ulcerative [Unknown]
  - Intestinal perforation [Unknown]
  - Actinomyces test positive [Unknown]
  - Gastritis [Unknown]
